FAERS Safety Report 20756969 (Version 2)
Quarter: 2022Q2

REPORT INFORMATION
  Report Type: Report from Study
  Country: US (occurrence: US)
  Receive Date: 20220427
  Receipt Date: 20220429
  Transmission Date: 20220721
  Serious: Yes (Other)
  Sender: FDA-Public Use
  Company Number: US-PFIZER INC-202200608779

PATIENT
  Age: 4 Month
  Sex: Male
  Weight: 3.63 kg

DRUGS (5)
  1. PF-06928316 (847B DS) [Suspect]
     Active Substance: PF-06928316 (847B DS)
     Indication: Immunisation
     Dosage: DOSE 1, SINGLE
     Route: 050
     Dates: start: 20211103, end: 20211103
  2. PF-06928316 (847B DS) [Suspect]
     Active Substance: PF-06928316 (847B DS)
     Indication: Immunisation
     Dosage: DOSE 1, SINGLE
     Route: 050
     Dates: start: 20211103, end: 20211103
  3. PLACEBO [Suspect]
     Active Substance: UNSPECIFIED INGREDIENT
     Indication: Immunisation
     Dosage: DOSE 1, SINGLE
     Route: 050
     Dates: start: 20211103, end: 20211103
  4. COVID-19 VACCINE [Concomitant]
     Dosage: DOSE 3, SINGLE
     Route: 050
     Dates: start: 20211019, end: 20211019
  5. INFLUENZA VIRUS VACCINE [Concomitant]
     Active Substance: INFLUENZA VIRUS VACCINE
     Dosage: DOSE NUMBER UNKNOWN, SINGLE
     Route: 050
     Dates: start: 20211020, end: 20211020

REACTIONS (2)
  - Maternal exposure during pregnancy [Not Recovered/Not Resolved]
  - Cardiac murmur [Not Recovered/Not Resolved]

NARRATIVE: CASE EVENT DATE: 20211103
